FAERS Safety Report 10748171 (Version 4)
Quarter: 2018Q4

REPORT INFORMATION
  Report Type: Spontaneous
  Country: SE (occurrence: SE)
  Receive Date: 20150129
  Receipt Date: 20181219
  Transmission Date: 20190204
  Serious: Yes (Life-Threatening, Hospitalization)
  Sender: FDA-Public Use
  Company Number: SE-JNJFOC-20150114158

PATIENT
  Age: 24 Year
  Sex: Male

DRUGS (4)
  1. HALDOL [Suspect]
     Active Substance: HALOPERIDOL
     Indication: PSYCHOTIC SYMPTOM
     Route: 042
     Dates: start: 20140204, end: 20140204
  2. OLANZAPINE. [Concomitant]
     Active Substance: OLANZAPINE
     Route: 065
  3. THERALEN [Concomitant]
     Active Substance: TRIMEPRAZINE
     Route: 065
  4. STESOLID [Suspect]
     Active Substance: DIAZEPAM
     Indication: PSYCHOTIC SYMPTOM
     Route: 042
     Dates: start: 20140204, end: 20140204

REACTIONS (5)
  - Depressed level of consciousness [Recovered/Resolved]
  - Myoglobin blood increased [Unknown]
  - Electrocardiogram ST segment elevation [Unknown]
  - Overdose [Recovered/Resolved]
  - Incorrect route of product administration [Unknown]

NARRATIVE: CASE EVENT DATE: 20140204
